FAERS Safety Report 9874502 (Version 2)
Quarter: 2015Q4

REPORT INFORMATION
  Report Type: Spontaneous
  Country: US (occurrence: US)
  Receive Date: 20140206
  Receipt Date: 20151030
  Transmission Date: 20160305
  Serious: No
  Sender: FDA-Public Use
  Company Number: US-BIOGENIDEC-2014BI011313

PATIENT
  Sex: Male

DRUGS (1)
  1. AVONEX [Suspect]
     Active Substance: INTERFERON BETA-1A
     Indication: MULTIPLE SCLEROSIS
     Route: 030
     Dates: start: 20001028

REACTIONS (3)
  - Musculoskeletal disorder [Not Recovered/Not Resolved]
  - Tremor [Not Recovered/Not Resolved]
  - Visual impairment [Not Recovered/Not Resolved]
